FAERS Safety Report 12596571 (Version 3)
Quarter: 2016Q4

REPORT INFORMATION
  Report Type: Spontaneous
  Country: US (occurrence: US)
  Receive Date: 20160726
  Receipt Date: 20161109
  Transmission Date: 20170207
  Serious: Yes (Death, Hospitalization, Other)
  Sender: FDA-Public Use
  Company Number: US-PFIZER INC-2016347873

PATIENT
  Age: 80 Year
  Sex: Female
  Weight: 50 kg

DRUGS (8)
  1. FOLATE [Concomitant]
     Active Substance: FOLATE SODIUM
     Indication: HYPERHOMOCYSTEINAEMIA
     Dosage: UNK
  2. CARAFATE [Concomitant]
     Active Substance: SUCRALFATE
     Indication: GASTROOESOPHAGEAL REFLUX DISEASE
     Dosage: UNK
  3. NEXIUM [Concomitant]
     Active Substance: ESOMEPRAZOLE MAGNESIUM
     Indication: GASTROOESOPHAGEAL REFLUX DISEASE
  4. SUTENT [Suspect]
     Active Substance: SUNITINIB MALATE
     Indication: PANCREATIC CARCINOMA METASTATIC
     Dosage: UNK
     Dates: start: 20151102
  5. SUTENT [Suspect]
     Active Substance: SUNITINIB MALATE
     Dosage: 25 MG, CYCLIC (7 DAYS ON, 7 DAYS OFF)
     Dates: start: 20151129
  6. SUTENT [Suspect]
     Active Substance: SUNITINIB MALATE
     Dosage: 37.5 MG, CYCLIC
  7. LASIX [Concomitant]
     Active Substance: FUROSEMIDE
     Indication: OEDEMA PERIPHERAL
     Dosage: UNK
  8. VITAMIN B12 [Concomitant]
     Active Substance: CYANOCOBALAMIN
     Indication: HYPERHOMOCYSTEINAEMIA
     Dosage: UNK

REACTIONS (15)
  - Dehydration [Unknown]
  - Dyspepsia [Unknown]
  - Pulmonary hypertension [Unknown]
  - Proctalgia [Unknown]
  - Drug intolerance [Unknown]
  - Hot flush [Unknown]
  - Abdominal pain [Unknown]
  - Fatigue [Unknown]
  - Oedema peripheral [Unknown]
  - Increased tendency to bruise [Unknown]
  - Asthenia [Unknown]
  - Multiple organ dysfunction syndrome [Fatal]
  - Neoplasm progression [Unknown]
  - Diarrhoea [Unknown]
  - Product use issue [Unknown]

NARRATIVE: CASE EVENT DATE: 20151129
